FAERS Safety Report 5757207-0 (Version None)
Quarter: 2008Q2

REPORT INFORMATION
  Report Type: 
  Country: None (occurrence: None)
  Receive Date: 20080603
  Receipt Date: 20080602
  Transmission Date: 20081010
  Serious: Yes (Death)
  Sender: FDA-Public Use
  Company Number: US-BRISTOL-MYERS SQUIBB COMPANY-14213078

PATIENT
  Age: 37 Year
  Sex: Male

DRUGS (7)
  1. FOSINOPRIL SODIUM [Suspect]
     Route: 048
  2. ACETAMINOPHEN [Suspect]
     Route: 048
  3. PROPOXYPHENE HYDROCHLORIDE [Suspect]
     Route: 048
  4. DILTIAZEM HCL [Suspect]
     Route: 048
  5. CELECOXIB [Suspect]
     Route: 048
  6. RAMIPRIL [Suspect]
     Route: 048
  7. OLMESARTAN MEDOXOMIL [Suspect]
     Route: 048

REACTIONS (1)
  - COMPLETED SUICIDE [None]
